FAERS Safety Report 25270710 (Version 2)
Quarter: 2025Q3

REPORT INFORMATION
  Report Type: Spontaneous
  Country: US (occurrence: US)
  Receive Date: 20250505
  Receipt Date: 20250805
  Transmission Date: 20251020
  Serious: No
  Sender: ABBVIE
  Company Number: US-ABBVIE-6257244

PATIENT
  Sex: Female

DRUGS (2)
  1. INFED [Suspect]
     Active Substance: IRON DEXTRAN
     Indication: Product used for unknown indication
     Route: 065
     Dates: start: 20241231
  2. INFED [Suspect]
     Active Substance: IRON DEXTRAN
     Indication: Product used for unknown indication
     Route: 065
     Dates: start: 20250114

REACTIONS (10)
  - Erythema [Unknown]
  - Urticaria [Unknown]
  - Lip swelling [Unknown]
  - Nasal congestion [Unknown]
  - Dyspnoea [Unknown]
  - Sneezing [Unknown]
  - Product quality issue [Unknown]
  - Hyperhidrosis [Unknown]
  - Tremor [Unknown]
  - Chest discomfort [Unknown]

NARRATIVE: CASE EVENT DATE: 20241231
